FAERS Safety Report 19493023 (Version 1)
Quarter: 2021Q3

REPORT INFORMATION
  Report Type: Spontaneous
  Country: US (occurrence: US)
  Receive Date: 20210705
  Receipt Date: 20210705
  Transmission Date: 20211014
  Serious: No
  Sender: FDA-Public Use
  Company Number: US-SA-2021SA218992

PATIENT
  Sex: Female

DRUGS (1)
  1. DUPILUMAB [Suspect]
     Active Substance: DUPILUMAB
     Indication: DERMATITIS ATOPIC
     Dosage: 300 MG, QOW
     Route: 058
     Dates: start: 20190716

REACTIONS (6)
  - Blood oestrogen decreased [Recovering/Resolving]
  - Swelling face [Recovering/Resolving]
  - Cystitis [Recovering/Resolving]
  - Rhinorrhoea [Recovering/Resolving]
  - Hypersensitivity [Recovering/Resolving]
  - Eye swelling [Recovering/Resolving]
